FAERS Safety Report 19467409 (Version 1)
Quarter: 2021Q2

REPORT INFORMATION
  Report Type: Spontaneous
  Country: US (occurrence: US)
  Receive Date: 20210626
  Receipt Date: 20210626
  Transmission Date: 20210717
  Serious: No
  Sender: FDA-Public Use
  Company Number: None

PATIENT
  Age: 73 Year
  Sex: Female
  Weight: 64.4 kg

DRUGS (9)
  1. GLIMEPIRIDE. [Concomitant]
     Active Substance: GLIMEPIRIDE
  2. DIPHENOXYLATE?ATROPINE [Concomitant]
     Active Substance: ATROPINE\DIPHENOXYLATE
  3. GABAPENTIN. [Concomitant]
     Active Substance: GABAPENTIN
  4. HYDROCHLOROTHIAZIDE. [Concomitant]
     Active Substance: HYDROCHLOROTHIAZIDE
  5. CETIRIZINE HCL [Concomitant]
     Active Substance: CETIRIZINE HYDROCHLORIDE
  6. LEVOTHYROXINE SODIUM. [Concomitant]
     Active Substance: LEVOTHYROXINE SODIUM
  7. IMATINIB. [Suspect]
     Active Substance: IMATINIB MESYLATE
     Indication: CHRONIC MYELOID LEUKAEMIA
     Route: 048
     Dates: start: 20210526, end: 20210601
  8. ATENOLOL. [Concomitant]
     Active Substance: ATENOLOL
  9. IMATINIB MESYLATE 400 MG TABLE [Concomitant]

REACTIONS (2)
  - Pleural effusion [None]
  - Symptom recurrence [None]

NARRATIVE: CASE EVENT DATE: 20210601
